FAERS Safety Report 5412392-5 (Version None)
Quarter: 2007Q3

REPORT INFORMATION
  Report Type: 
  Country: None (occurrence: None)
  Receive Date: 20070713
  Receipt Date: 20070506
  Transmission Date: 20080115
  Serious: No
  Sender: FDA-Public Use
  Company Number: 2007SP001691

PATIENT
  Sex: Female

DRUGS (2)
  1. LUNESTA [Suspect]
     Indication: INSOMNIA
     Dosage: 3 MG; PRN;ORAL
     Route: 048
     Dates: start: 20070401, end: 20070401
  2. AMBIEN [Concomitant]

REACTIONS (1)
  - DYSGEUSIA [None]
